FAERS Safety Report 9474037 (Version 3)
Quarter: 2015Q1

REPORT INFORMATION
  Report Type: Spontaneous
  Country: JP (occurrence: JP)
  Receive Date: 20130823
  Receipt Date: 20150105
  Transmission Date: 20150721
  Serious: No
  Sender: FDA-Public Use
  Company Number: PHHY2013JP091470

PATIENT
  Age: 51 Year
  Sex: Male

DRUGS (3)
  1. TS-1 [Concomitant]
     Active Substance: GIMERACIL\OTERACIL\TEGAFUR
     Indication: PRODUCT USED FOR UNKNOWN INDICATION
     Dosage: UNK UKN, UNK
     Route: 048
  2. EXFORGE [Suspect]
     Active Substance: AMLODIPINE BESYLATE\VALSARTAN
     Indication: HYPERTENSION
     Dosage: 1 DF, DAILY
     Route: 048
     Dates: start: 20101015
  3. PARIET [Concomitant]
     Active Substance: RABEPRAZOLE SODIUM
     Indication: PRODUCT USED FOR UNKNOWN INDICATION
     Dosage: UNK UKN, UNK
     Route: 048

REACTIONS (1)
  - Gynaecomastia [Recovered/Resolved]

NARRATIVE: CASE EVENT DATE: 201301
